FAERS Safety Report 7027667-6 (Version None)
Quarter: 2010Q4

REPORT INFORMATION
  Report Type: 
  Country: None (occurrence: None)
  Receive Date: 20101004
  Receipt Date: 20100928
  Transmission Date: 20110411
  Serious: Yes (Other)
  Sender: FDA-Public Use
  Company Number: CH-AMGEN-QUU437279

PATIENT
  Age: 45 Year
  Sex: Male

DRUGS (4)
  1. ENBREL [Suspect]
     Indication: ANKYLOSING SPONDYLITIS
     Route: 058
     Dates: start: 20100408
  2. ENBREL [Suspect]
     Route: 058
     Dates: start: 20100101, end: 20100601
  3. OMEPRAZOLE [Concomitant]
     Route: 048
     Dates: start: 20091011
  4. PIROXICAM [Concomitant]
     Route: 048
     Dates: start: 20091011

REACTIONS (5)
  - ALTERED VISUAL DEPTH PERCEPTION [None]
  - DISTURBANCE IN ATTENTION [None]
  - DIZZINESS [None]
  - FATIGUE [None]
  - SOMNOLENCE [None]
